FAERS Safety Report 17243527 (Version 17)
Quarter: 2022Q4

REPORT INFORMATION
  Report Type: Report from Study
  Country: US (occurrence: US)
  Receive Date: 20200107
  Receipt Date: 20221229
  Transmission Date: 20230113
  Serious: Yes (Hospitalization, Other)
  Sender: FDA-Public Use
  Company Number: US-SHIRE-US202000215

PATIENT
  Age: 51 Year
  Sex: Male

DRUGS (4)
  1. HEMOFIL [Suspect]
     Active Substance: ANTIHEMOPHILIC FACTOR HUMAN
     Indication: Product used for unknown indication
     Dosage: 3600 INTERNATIONAL UNIT
     Route: 042
  2. HEMOFIL [Suspect]
     Active Substance: ANTIHEMOPHILIC FACTOR HUMAN
     Dosage: 4600 INTERNATIONAL UNIT
     Route: 042
  3. HEMOFIL [Suspect]
     Active Substance: ANTIHEMOPHILIC FACTOR HUMAN
     Dosage: 3180 INTERNATIONAL UNIT
     Route: 065
  4. HEMOFIL [Suspect]
     Active Substance: ANTIHEMOPHILIC FACTOR HUMAN
     Dosage: 3180 INTERNATIONAL UNIT
     Route: 042

REACTIONS (9)
  - Haemarthrosis [Not Recovered/Not Resolved]
  - Haemorrhage [Recovering/Resolving]
  - Muscle haemorrhage [Unknown]
  - Arthropathy [Unknown]
  - COVID-19 [Unknown]
  - Arthralgia [Unknown]
  - Joint swelling [Unknown]
  - Feeling hot [Unknown]
  - Mouth haemorrhage [Recovered/Resolved]

NARRATIVE: CASE EVENT DATE: 20200102
